FAERS Safety Report 15700438 (Version 1)
Quarter: 2018Q4

REPORT INFORMATION
  Report Type: Spontaneous
  Country: JP (occurrence: JP)
  Receive Date: 20181207
  Receipt Date: 20181207
  Transmission Date: 20190205
  Serious: Yes (Other)
  Sender: FDA-Public Use
  Company Number: JP-PFIZER INC-2018451228

PATIENT
  Age: 39 Year

DRUGS (2)
  1. IBRANCE [Suspect]
     Active Substance: PALBOCICLIB
     Dosage: UNK
     Dates: start: 20181205
  2. IBRANCE [Suspect]
     Active Substance: PALBOCICLIB
     Dosage: UNK
     Dates: start: 20181017, end: 201811

REACTIONS (7)
  - Bone marrow failure [Not Recovered/Not Resolved]
  - Neutrophil count decreased [Unknown]
  - Haematochezia [Recovered/Resolved]
  - Stomatitis [Recovering/Resolving]
  - White blood cell count decreased [Unknown]
  - Diverticulum [Recovered/Resolved]
  - Pyrexia [Recovered/Resolved]

NARRATIVE: CASE EVENT DATE: 201810
